FAERS Safety Report 5832835-2 (Version None)
Quarter: 2008Q3

REPORT INFORMATION
  Report Type: 
  Country: None (occurrence: None)
  Receive Date: 20080804
  Receipt Date: 20080730
  Transmission Date: 20090109
  Serious: Yes (Other)
  Sender: FDA-Public Use
  Company Number: US-JNJCH-2008019975

PATIENT
  Age: 55 Year
  Sex: Male
  Weight: 59 kg

DRUGS (3)
  1. MINOXIDIL [Suspect]
     Indication: ALOPECIA
     Dosage: TEXT:1 CAPFULL 2 X DAY
     Route: 061
     Dates: start: 20080601, end: 20080723
  2. SIMVASTATIN [Concomitant]
     Indication: BLOOD CHOLESTEROL INCREASED
     Dosage: TEXT:40 MG, UNSPECIFIED
     Route: 065
  3. LISINOPRIL [Concomitant]
     Indication: BLOOD PRESSURE
     Dosage: TEXT:10 MG, UNSPECIFIED
     Route: 065

REACTIONS (4)
  - DIZZINESS [None]
  - HEADACHE [None]
  - HYPOAESTHESIA [None]
  - SYNCOPE [None]
